APPROVED DRUG PRODUCT: ATENOLOL
Active Ingredient: ATENOLOL
Strength: 100MG
Dosage Form/Route: TABLET;ORAL
Application: A078512 | Product #003 | TE Code: AB
Applicant: AUROBINDO PHARMA LTD
Approved: Oct 31, 2007 | RLD: No | RS: No | Type: RX